FAERS Safety Report 7880598-1 (Version None)
Quarter: 2011Q4

REPORT INFORMATION
  Report Type: 
  Country: None (occurrence: None)
  Receive Date: 20111101
  Receipt Date: 20100722
  Transmission Date: 20120403
  Serious: No
  Sender: FDA-Public Use
  Company Number: US-BAYER-201029043NA

PATIENT
  Age: 59 Year
  Sex: Male

DRUGS (4)
  1. LEVITRA [Suspect]
     Indication: SEXUAL DYSFUNCTION
     Dosage: 20 MG, UNK
     Route: 048
     Dates: start: 20100606
  2. LISINOPRIL AND HYDROCHLOROTHIAZIDE [Concomitant]
  3. DIETARY SUPPLEMENT [Concomitant]
  4. VITAMIN TAB [Concomitant]

REACTIONS (2)
  - INSOMNIA [None]
  - NO ADVERSE EVENT [None]
